FAERS Safety Report 5331919-5 (Version None)
Quarter: 2007Q2

REPORT INFORMATION
  Report Type: 
  Country: None (occurrence: None)
  Receive Date: 20070306
  Receipt Date: 20060622
  Transmission Date: 20071010
  Serious: Yes (Other)
  Sender: FDA-Public Use
  Company Number: A03200604064

PATIENT
  Age: 67 Year
  Sex: Male
  Weight: 99.32 kg

DRUGS (3)
  1. PLAVIX [Suspect]
     Indication: CEREBROVASCULAR ACCIDENT
     Dosage: 75 MG QD - ORAL
     Route: 048
     Dates: start: 20050701
  2. RAMIPRIL [Concomitant]
  3. ROSUVASTATIN [Concomitant]

REACTIONS (3)
  - ABDOMINAL DISTENSION [None]
  - THROMBOSIS IN DEVICE [None]
  - WEIGHT INCREASED [None]
